FAERS Safety Report 8432800-5 (Version None)
Quarter: 2012Q2

REPORT INFORMATION
  Report Type: 
  Country: None (occurrence: None)
  Receive Date: 20120613
  Receipt Date: 20120607
  Transmission Date: 20120825
  Serious: No
  Sender: FDA-Public Use
  Company Number: US-PFIZER INC-2012138157

PATIENT
  Sex: Female
  Weight: 52.608 kg

DRUGS (2)
  1. DOPAMINE [Concomitant]
     Dosage: 20 MG, 4X/DAY
  2. LEVOXYL [Suspect]
     Indication: THYROID DISORDER
     Dosage: 75 UG, DAILY

REACTIONS (1)
  - URINE ANALYSIS ABNORMAL [None]
